FAERS Safety Report 7512809-6 (Version None)
Quarter: 2011Q2

REPORT INFORMATION
  Report Type: 
  Country: None (occurrence: None)
  Receive Date: 20110531
  Receipt Date: 20110523
  Transmission Date: 20111010
  Serious: Yes (Other)
  Sender: FDA-Public Use
  Company Number: B0723021A

PATIENT
  Sex: Female

DRUGS (1)
  1. FLUTICASONE PROPIONATE [Suspect]
     Route: 065
     Dates: end: 20110523

REACTIONS (3)
  - BORDERLINE GLAUCOMA [None]
  - OROPHARYNGEAL DISCOMFORT [None]
  - DRY THROAT [None]
